FAERS Safety Report 17937689 (Version 1)
Quarter: 2020Q2

REPORT INFORMATION
  Report Type: Spontaneous
  Country: US (occurrence: US)
  Receive Date: 20200624
  Receipt Date: 20200624
  Transmission Date: 20200714
  Serious: No
  Sender: FDA-Public Use
  Company Number: US-TEVA-2020-US-1791144

PATIENT
  Sex: Male

DRUGS (7)
  1. PRILOSEC [Concomitant]
     Active Substance: OMEPRAZOLE MAGNESIUM
  2. PRINIVIL [Concomitant]
     Active Substance: LISINOPRIL
  3. VITAMIN D [Concomitant]
     Active Substance: VITAMIN D NOS
  4. ATORVASTATIN [Concomitant]
     Active Substance: ATORVASTATIN
  5. LEVOTHYROXIN [Concomitant]
     Active Substance: LEVOTHYROXINE
  6. NORVASC [Concomitant]
     Active Substance: AMLODIPINE BESYLATE
  7. COPAXONE [Suspect]
     Active Substance: GLATIRAMER ACETATE
     Indication: MULTIPLE SCLEROSIS
     Route: 058
     Dates: start: 20150924

REACTIONS (2)
  - Sleep apnoea syndrome [Not Recovered/Not Resolved]
  - Fatigue [Not Recovered/Not Resolved]
